FAERS Safety Report 19029571 (Version 1)
Quarter: 2021Q1

REPORT INFORMATION
  Report Type: Other
  Country: PT (occurrence: PT)
  Receive Date: 20210319
  Receipt Date: 20210319
  Transmission Date: 20210420
  Serious: Yes (Life-Threatening, Hospitalization, Other)
  Sender: FDA-Public Use
  Company Number: PT-ENCUBE-000050

PATIENT
  Age: 76 Year
  Sex: Female

DRUGS (3)
  1. DICLOFENAC [Suspect]
     Active Substance: DICLOFENAC
     Indication: BACK PAIN
     Dosage: 75 MG DICLOFENAC
     Route: 030
  2. THIOCOLCHICOSIDE [Concomitant]
     Active Substance: THIOCOLCHICOSIDE
     Indication: BACK PAIN
     Dosage: DAILY INTRAMUSCULAR ADMINISTRATION OF 4 MG THIOCOLCHICOSIDE FOR A TOTAL OF SIX DAYS
     Route: 030
  3. DIAZEPAM. [Concomitant]
     Active Substance: DIAZEPAM
     Indication: BACK PAIN
     Dosage: 5 MG DIAZEPAM FOR A TOTAL OF SIX DAYS
     Route: 030

REACTIONS (1)
  - Haemolytic anaemia [Recovered/Resolved]
